FAERS Safety Report 21229631 (Version 1)
Quarter: 2022Q3

REPORT INFORMATION
  Report Type: Spontaneous
  Country: CN (occurrence: CN)
  Receive Date: 20220818
  Receipt Date: 20220818
  Transmission Date: 20221027
  Serious: Yes (Other)
  Sender: FDA-Public Use
  Company Number: None

PATIENT
  Age: 35 Year
  Sex: Male

DRUGS (3)
  1. MANNITOL [Suspect]
     Active Substance: MANNITOL
     Indication: Diuretic therapy
     Dosage: 100 ML ONCE A DAY
     Route: 041
     Dates: start: 20220716, end: 20220717
  2. MANNITOL [Suspect]
     Active Substance: MANNITOL
     Indication: Oedema
  3. MANNITOL [Suspect]
     Active Substance: MANNITOL
     Indication: Swelling

REACTIONS (2)
  - Rash [Recovered/Resolved]
  - Pruritus [Recovered/Resolved]

NARRATIVE: CASE EVENT DATE: 20220717
